FAERS Safety Report 7285342-7 (Version None)
Quarter: 2011Q1

REPORT INFORMATION
  Report Type: 
  Country: None (occurrence: None)
  Receive Date: 20110210
  Receipt Date: 20110128
  Transmission Date: 20110831
  Serious: Yes (Other)
  Sender: FDA-Public Use
  Company Number: CA-ROCHE-756190

PATIENT
  Sex: Female

DRUGS (3)
  1. XENICAL [Suspect]
     Indication: WEIGHT CONTROL
     Route: 048
     Dates: start: 20010101
  2. XENICAL [Suspect]
     Route: 048
     Dates: start: 20090101, end: 20090101
  3. XENICAL [Suspect]
     Route: 048

REACTIONS (4)
  - ALOPECIA [None]
  - HYPERTENSION [None]
  - STRESS [None]
  - ROAD TRAFFIC ACCIDENT [None]
